FAERS Safety Report 8229855-X (Version None)
Quarter: 2012Q1

REPORT INFORMATION
  Report Type: 
  Country: None (occurrence: None)
  Receive Date: 20120323
  Receipt Date: 20120308
  Transmission Date: 20120608
  Serious: Yes (Death)
  Sender: FDA-Public Use
  Company Number: GB-AMGEN-GBRCT2012015594

PATIENT
  Age: 64 Year
  Sex: Male
  Weight: 97.8 kg

DRUGS (18)
  1. DERMOL                             /01330701/ [Concomitant]
     Dosage: UNK
  2. CLOBETASOL PROPIONATE [Concomitant]
     Dosage: UNK
  3. INSULIN [Concomitant]
     Dosage: UNK
  4. ACETYLSALICYLIC ACID SRT [Concomitant]
     Dosage: UNK
  5. FUMARIC ACID [Concomitant]
     Dosage: UNK
  6. CLARITHROMYCIN [Concomitant]
     Dosage: UNK
  7. SEPTRA [Concomitant]
     Dosage: UNK
  8. SERTRALINE HYDROCHLORIDE [Concomitant]
  9. PERSANTIN [Concomitant]
     Dosage: UNK
  10. LEVOFLOXACIN [Concomitant]
     Dosage: UNK
  11. ETANERCEPT [Suspect]
     Indication: PRODUCT USED FOR UNKNOWN INDICATION
     Dosage: 50 MG, WEEKLY
     Dates: start: 20100930, end: 20110614
  12. AMLODIPINE [Concomitant]
     Dosage: UNK
  13. RAMIPRIL [Concomitant]
     Dosage: UNK
  14. NOVOMIX [Concomitant]
     Dosage: UNK
  15. LANTUS [Concomitant]
     Dosage: UNK
  16. GLICLAZIDE [Concomitant]
     Dosage: UNK
  17. SIMVASTATIN [Concomitant]
     Dosage: UNK
  18. METFORMIN HCL [Concomitant]
     Dosage: UNK

REACTIONS (1)
  - LUNG NEOPLASM MALIGNANT [None]
